FAERS Safety Report 25460176 (Version 1)
Quarter: 2025Q2

REPORT INFORMATION
  Report Type: Spontaneous
  Country: US (occurrence: US)
  Receive Date: 20250620
  Receipt Date: 20250620
  Transmission Date: 20250716
  Serious: Yes (Death, Other)
  Sender: PIERRE FABRE MEDICAMENT
  Company Number: US-PFM-2024-03693

PATIENT

DRUGS (20)
  1. PROPRANOLOL [Suspect]
     Active Substance: PROPRANOLOL HYDROCHLORIDE
     Indication: Hyperthermia
     Route: 065
  2. PROPRANOLOL [Suspect]
     Active Substance: PROPRANOLOL HYDROCHLORIDE
     Indication: Paroxysmal sympathetic hyperactivity
  3. PROPRANOLOL [Suspect]
     Active Substance: PROPRANOLOL HYDROCHLORIDE
     Indication: Off label use
  4. ACETAMINOPHEN [Suspect]
     Active Substance: ACETAMINOPHEN
     Indication: Hyperthermia
     Route: 065
  5. ACETAMINOPHEN [Suspect]
     Active Substance: ACETAMINOPHEN
     Indication: Paroxysmal sympathetic hyperactivity
  6. DANTROLENE [Suspect]
     Active Substance: DANTROLENE
     Indication: Hyperthermia
     Route: 065
  7. DANTROLENE [Suspect]
     Active Substance: DANTROLENE
     Indication: Paroxysmal sympathetic hyperactivity
  8. CLONIDINE [Suspect]
     Active Substance: CLONIDINE
     Indication: Hyperthermia
     Route: 065
  9. CLONIDINE [Suspect]
     Active Substance: CLONIDINE
     Indication: Paroxysmal sympathetic hyperactivity
  10. DEXMEDETOMIDINE [Suspect]
     Active Substance: DEXMEDETOMIDINE
     Indication: Hyperthermia
     Route: 065
  11. DEXMEDETOMIDINE [Suspect]
     Active Substance: DEXMEDETOMIDINE
     Indication: Paroxysmal sympathetic hyperactivity
  12. FENTANYL [Suspect]
     Active Substance: FENTANYL
     Indication: Hyperthermia
     Route: 065
  13. FENTANYL [Suspect]
     Active Substance: FENTANYL
     Indication: Paroxysmal sympathetic hyperactivity
  14. MEPERIDINE [Suspect]
     Active Substance: MEPERIDINE
     Indication: Hyperthermia
     Route: 065
  15. MEPERIDINE [Suspect]
     Active Substance: MEPERIDINE
     Indication: Paroxysmal sympathetic hyperactivity
  16. TRAMADOL [Suspect]
     Active Substance: TRAMADOL
     Indication: Hyperthermia
     Route: 065
  17. TRAMADOL [Suspect]
     Active Substance: TRAMADOL
     Indication: Paroxysmal sympathetic hyperactivity
  18. METHADONE [Suspect]
     Active Substance: METHADONE HYDROCHLORIDE
     Indication: Hyperthermia
     Route: 065
  19. METHADONE [Suspect]
     Active Substance: METHADONE HYDROCHLORIDE
     Indication: Paroxysmal sympathetic hyperactivity
  20. BROMOCRIPTINE [Suspect]
     Active Substance: BROMOCRIPTINE
     Indication: Hyperthermia
     Route: 065

REACTIONS (6)
  - Death [Fatal]
  - Hepatotoxicity [Unknown]
  - Bradycardia [Unknown]
  - Product use issue [Unknown]
  - Product use in unapproved indication [Unknown]
  - Off label use [Unknown]
